FAERS Safety Report 6806450-8 (Version None)
Quarter: 2010Q2

REPORT INFORMATION
  Report Type: 
  Country: None (occurrence: None)
  Receive Date: 20100629
  Receipt Date: 20080303
  Transmission Date: 20101027
  Serious: No
  Sender: FDA-Public Use
  Company Number: US-PFIZER INC-2008017177

PATIENT
  Sex: Male
  Weight: 81.818 kg

DRUGS (2)
  1. VIAGRA [Suspect]
     Dosage: 3 EVERY 1 WEEKS
     Dates: start: 20071101
  2. VITAMINS [Concomitant]

REACTIONS (2)
  - DRUG INEFFECTIVE [None]
  - FEELING ABNORMAL [None]
